FAERS Safety Report 6499114-4 (Version None)
Quarter: 2009Q4

REPORT INFORMATION
  Report Type: 
  Country: None (occurrence: None)
  Receive Date: 20091215
  Receipt Date: 20091203
  Transmission Date: 20100525
  Serious: Yes (Other)
  Sender: FDA-Public Use
  Company Number: FR-ELI_LILLY_AND_COMPANY-FR200912001208

PATIENT
  Age: 70 Year
  Sex: Female

DRUGS (6)
  1. BYETTA [Suspect]
     Indication: DIABETES MELLITUS
     Dosage: 10 UG, 2/D
     Route: 058
     Dates: start: 20090501
  2. LANTUS [Concomitant]
     Indication: DIABETES MELLITUS
     Dosage: UNK, UNKNOWN
     Route: 042
  3. DETENSIEL [Concomitant]
     Dosage: UNK, UNKNOWN
     Route: 065
  4. TRIATEC [Concomitant]
     Dosage: UNK, UNKNOWN
     Route: 065
  5. ZOCOR [Concomitant]
     Dosage: UNK, UNKNOWN
     Route: 065
  6. ZARNESTRA [Concomitant]
     Dosage: UNK, UNKNOWN
     Route: 065

REACTIONS (4)
  - BLOOD CHROMOGRANIN A INCREASED [None]
  - LEUKOCYTOSIS [None]
  - OFF LABEL USE [None]
  - THYROID NEOPLASM [None]
